FAERS Safety Report 15226394 (Version 1)
Quarter: 2018Q3

REPORT INFORMATION
  Report Type: Report from Study
  Country: US (occurrence: US)
  Receive Date: 20180801
  Receipt Date: 20180801
  Transmission Date: 20181010
  Serious: No
  Sender: FDA-Public Use
  Company Number: US-ROCHE-2161256

PATIENT
  Sex: Female
  Weight: 90.35 kg

DRUGS (2)
  1. OCREVUS [Suspect]
     Active Substance: OCRELIZUMAB
     Indication: RELAPSING-REMITTING MULTIPLE SCLEROSIS
     Dosage: FIRST HALF OF SPLIT DOSE
     Route: 065
     Dates: start: 20180515
  2. OCREVUS [Suspect]
     Active Substance: OCRELIZUMAB
     Dosage: SECOND HALF OF SPLIT DOSE
     Route: 065
     Dates: start: 20180529

REACTIONS (18)
  - Eye inflammation [Unknown]
  - Dry skin [Not Recovered/Not Resolved]
  - Fatigue [Not Recovered/Not Resolved]
  - Weight increased [Not Recovered/Not Resolved]
  - Decreased appetite [Not Recovered/Not Resolved]
  - Ocular hyperaemia [Unknown]
  - Gingival bleeding [Not Recovered/Not Resolved]
  - Increased tendency to bruise [Not Recovered/Not Resolved]
  - Vascular rupture [Not Recovered/Not Resolved]
  - Malaise [Not Recovered/Not Resolved]
  - Eye irritation [Unknown]
  - Dry mouth [Not Recovered/Not Resolved]
  - Migraine [Not Recovered/Not Resolved]
  - Conjunctivitis [Unknown]
  - Dry eye [Unknown]
  - Nausea [Not Recovered/Not Resolved]
  - Alopecia [Not Recovered/Not Resolved]
  - Urine odour abnormal [Not Recovered/Not Resolved]
